FAERS Safety Report 12420245 (Version 1)
Quarter: 2016Q2

REPORT INFORMATION
  Report Type: Spontaneous
  Country: PT (occurrence: PT)
  Receive Date: 20160531
  Receipt Date: 20160531
  Transmission Date: 20160815
  Serious: Yes (Other)
  Sender: FDA-Public Use
  Company Number: PT-ABBVIE-16P-130-1639891-00

PATIENT
  Age: 6 Month
  Sex: Female

DRUGS (2)
  1. KLACID [Suspect]
     Active Substance: CLARITHROMYCIN
     Indication: OTITIS MEDIA ACUTE
     Route: 065
     Dates: start: 201203
  2. CELESTONE [Concomitant]
     Active Substance: BETAMETHASONE
     Indication: PRODUCT USED FOR UNKNOWN INDICATION

REACTIONS (2)
  - Skin lesion [Recovered/Resolved]
  - Rash [Recovered/Resolved]

NARRATIVE: CASE EVENT DATE: 201203
